FAERS Safety Report 10766819 (Version 4)
Quarter: 2015Q2

REPORT INFORMATION
  Report Type: Spontaneous
  Country: US (occurrence: US)
  Receive Date: 20150205
  Receipt Date: 20150423
  Transmission Date: 20150821
  Serious: Yes (Death, Hospitalization, Other)
  Sender: FDA-Public Use
  Company Number: US-PFIZER INC-2015047492

PATIENT
  Age: 74 Year
  Sex: Female
  Weight: 57 kg

DRUGS (1)
  1. REVATIO [Suspect]
     Active Substance: SILDENAFIL CITRATE
     Indication: CARDIAC DISORDER
     Dosage: 80 MG, 3X/DAY

REACTIONS (7)
  - Cardiac arrest [Fatal]
  - Pain [Unknown]
  - Musculoskeletal pain [Unknown]
  - Pulmonary oedema [Unknown]
  - Traumatic intracranial haemorrhage [Unknown]
  - Fall [Unknown]
  - Asthenia [Fatal]

NARRATIVE: CASE EVENT DATE: 2015
